FAERS Safety Report 9476673 (Version 1)
Quarter: 2013Q3

REPORT INFORMATION
  Report Type: Spontaneous
  Country: US (occurrence: US)
  Receive Date: 20130826
  Receipt Date: 20130826
  Transmission Date: 20140515
  Serious: No
  Sender: FDA-Public Use
  Company Number: US-BRISTOL-MYERS SQUIBB COMPANY-19002138

PATIENT
  Age: 69 Year
  Sex: Male
  Weight: 72.56 kg

DRUGS (6)
  1. KENALOG-10 INJ [Suspect]
     Indication: OTITIS MEDIA ACUTE
     Dates: start: 20130521
  2. KENALOG-40 INJ [Suspect]
     Indication: OTITIS MEDIA ACUTE
     Dates: start: 20130524
  3. CEFUROXIME AXETIL [Suspect]
     Indication: OTITIS MEDIA ACUTE
  4. PREDNISONE [Concomitant]
  5. CREON [Concomitant]
  6. PRILOSEC [Concomitant]

REACTIONS (7)
  - Tremor [Unknown]
  - Decreased appetite [Unknown]
  - Depressed mood [Unknown]
  - Gait disturbance [Unknown]
  - Asthenia [Unknown]
  - Decreased interest [Unknown]
  - Somnolence [Unknown]
